FAERS Safety Report 6046150-8 (Version None)
Quarter: 2009Q1

REPORT INFORMATION
  Report Type: 
  Country: None (occurrence: None)
  Receive Date: 20090122
  Receipt Date: 20090114
  Transmission Date: 20090719
  Serious: Yes (Other)
  Sender: FDA-Public Use
  Company Number: SE-JNJFOC-20090102083

PATIENT
  Age: 85 Year
  Sex: Female

DRUGS (13)
  1. HALDOL [Suspect]
     Indication: HALLUCINATION
     Dosage: HALF TABLET TWICE A DAY
     Route: 048
  2. MOBIC [Concomitant]
     Route: 065
  3. OMEPRAZOLE [Concomitant]
     Route: 065
  4. BETOLVET [Concomitant]
     Route: 065
  5. TROMBYL [Concomitant]
     Route: 065
  6. LEVATIN [Concomitant]
     Route: 065
  7. FOLACIN [Concomitant]
     Route: 065
  8. ATACONG [Concomitant]
     Route: 065
  9. LASAIT RETARD [Concomitant]
     Route: 065
  10. ZOLPIDEM TARTRATE [Concomitant]
     Indication: SLEEP DISORDER
     Route: 065
  11. LAYOBEREL [Concomitant]
     Route: 065
  12. LOKULOS RECIP [Concomitant]
     Route: 065
  13. ACETAMINOPHEN [Concomitant]
     Route: 065

REACTIONS (3)
  - DYSARTHRIA [None]
  - DYSPHONIA [None]
  - HYPOKINESIA [None]
